FAERS Safety Report 7455944-3 (Version None)
Quarter: 2011Q2

REPORT INFORMATION
  Report Type: 
  Country: None (occurrence: None)
  Receive Date: 20110503
  Receipt Date: 20110421
  Transmission Date: 20111010
  Serious: Yes (Hospitalization)
  Sender: FDA-Public Use
  Company Number: PHHY2011BR33899

PATIENT
  Age: 75 Year
  Sex: Female

DRUGS (10)
  1. OLANZAPINE [Interacting]
     Dosage: 5 MG/DAY
  2. VALPROIC ACID [Suspect]
     Indication: BIPOLAR DISORDER
     Dosage: 1000 MG/DAY
  3. PAROXETINE [Concomitant]
     Dosage: 20 MG, UNK
  4. ALENDRONATE SODIUM [Concomitant]
     Dosage: 70 MG WEEKLY
  5. HALOPERIDOL [Concomitant]
     Dosage: 10 MG, UNK
  6. ASPIRIN [Concomitant]
     Dosage: 100 MG/DAY
  7. OLANZAPINE [Interacting]
     Indication: BIPOLAR DISORDER
     Dosage: 2.5 MG/DAY
  8. OLANZAPINE [Interacting]
     Dosage: 10 MG/DAY
  9. CHLORPROMAZINE [Concomitant]
     Dosage: 300 MG, UNK
  10. OLANZAPINE [Interacting]
     Dosage: 15 MG/DAY

REACTIONS (7)
  - SALIVARY HYPERSECRETION [None]
  - DRUG INTERACTION [None]
  - MANIA [None]
  - APHASIA [None]
  - AGITATION [None]
  - MEMORY IMPAIRMENT [None]
  - GRANDIOSITY [None]
